FAERS Safety Report 21624371 (Version 1)
Quarter: 2022Q4

REPORT INFORMATION
  Report Type: Report from Study
  Country: CO (occurrence: CO)
  Receive Date: 20221121
  Receipt Date: 20221121
  Transmission Date: 20230113
  Serious: Yes (Hospitalization)
  Sender: FDA-Public Use
  Company Number: CO-ABBVIE-4207575

PATIENT
  Age: 46 Year
  Sex: Female
  Weight: 61 kg

DRUGS (1)
  1. ZEMPLAR [Suspect]
     Active Substance: PARICALCITOL
     Indication: Hyperparathyroidism secondary
     Dosage: FORM STRENGTH: 5 MICROGRAM?FREQUENCY: 1 UNIT DOSE POST DIALYSIS
     Route: 042
     Dates: start: 20210423, end: 20220921

REACTIONS (1)
  - Catheter site infection [Recovering/Resolving]

NARRATIVE: CASE EVENT DATE: 20221012
